FAERS Safety Report 8043431-3 (Version None)
Quarter: 2012Q1

REPORT INFORMATION
  Report Type: 
  Country: None (occurrence: None)
  Receive Date: 20120112
  Receipt Date: 20111230
  Transmission Date: 20120608
  Serious: Yes (Death)
  Sender: FDA-Public Use
  Company Number: DE-MYLANLABS-2012S1000484

PATIENT
  Age: 50 Year
  Sex: Female

DRUGS (7)
  1. TACROLIMUS [Suspect]
     Indication: IMMUNOSUPPRESSION
  2. FLUCONAZOLE [Suspect]
     Indication: INFECTIOUS DISEASE CARRIER
     Route: 042
  3. MYCOPHENOLATE MOFETIL [Suspect]
     Indication: IMMUNOSUPPRESSION
  4. MYCOPHENOLIC ACID [Suspect]
     Indication: IMMUNOSUPPRESSION
  5. AMOXICILLIN AND CLAVULANATE POTASSIUM [Concomitant]
     Indication: PRODUCT USED FOR UNKNOWN INDICATION
  6. MEROPENEM [Concomitant]
     Indication: PRODUCT USED FOR UNKNOWN INDICATION
  7. LEVOFLOXACIN [Concomitant]
     Indication: PRODUCT USED FOR UNKNOWN INDICATION

REACTIONS (12)
  - HEPATITIS C [None]
  - URETERAL DISORDER [None]
  - HEPATIC FAILURE [None]
  - HAEMORRHAGE [None]
  - LIVER INJURY [None]
  - HEPATIC ENCEPHALOPATHY [None]
  - CANDIDIASIS [None]
  - SEPSIS [None]
  - HYPOTENSION [None]
  - CYTOMEGALOVIRUS INFECTION [None]
  - DIARRHOEA [None]
  - URINARY FISTULA [None]
